FAERS Safety Report 9742824 (Version 3)
Quarter: 2013Q4

REPORT INFORMATION
  Report Type: Spontaneous
  Country: JP (occurrence: JP)
  Receive Date: 20131210
  Receipt Date: 20131223
  Transmission Date: 20140711
  Serious: Yes (Life-Threatening, Hospitalization)
  Sender: FDA-Public Use
  Company Number: JP-JNJFOC-20131100307

PATIENT
  Age: 61 Year
  Sex: Male
  Weight: 84 kg

DRUGS (6)
  1. XARELTO [Suspect]
     Indication: ATRIAL FIBRILLATION
     Route: 048
     Dates: start: 20130605
  2. XARELTO [Suspect]
     Indication: CEREBROVASCULAR ACCIDENT PROPHYLAXIS
     Route: 048
     Dates: start: 20130605
  3. CO DIOVAN [Concomitant]
     Route: 048
     Dates: start: 20100403
  4. MANIDIPINE HYDROCHLORIDE [Concomitant]
     Route: 048
     Dates: start: 20071031
  5. TAMBOCOR [Concomitant]
     Route: 048
     Dates: start: 20080321
  6. ATORVASTATIN [Concomitant]
     Route: 048
     Dates: start: 20071114

REACTIONS (4)
  - Acute promyelocytic leukaemia [Recovering/Resolving]
  - Haemorrhage subcutaneous [Unknown]
  - Gingival bleeding [Unknown]
  - Epistaxis [Unknown]
